FAERS Safety Report 4303008-X (Version None)
Quarter: 2004Q1

REPORT INFORMATION
  Report Type: 
  Country: None (occurrence: None)
  Receive Date: 20040224
  Receipt Date: 20040213
  Transmission Date: 20041129
  Serious: Yes (Life-Threatening)
  Sender: FDA-Public Use
  Company Number: GB-GLAXOSMITHKLINE-B0324078A

PATIENT
  Age: 64 Year
  Sex: Male

DRUGS (7)
  1. CEFUROXIME SODIUM [Suspect]
     Indication: ANAESTHESIA
     Dosage: 1.5G SINGLE DOSE
     Route: 042
     Dates: start: 20040130, end: 20040130
  2. ROCURONIUM BROMIDE [Suspect]
     Indication: ANAESTHESIA
     Dosage: 50MG SINGLE DOSE
     Route: 042
     Dates: start: 20040130, end: 20040130
  3. OMEPRAZOLE [Concomitant]
     Route: 048
  4. PROPOFOL [Concomitant]
     Route: 065
     Dates: start: 20040130
  5. DEXAMETHASONE [Concomitant]
     Route: 065
     Dates: start: 20040130
  6. MIDAZOLAM HCL [Concomitant]
     Route: 065
     Dates: start: 20040130
  7. FENTANYL [Concomitant]
     Route: 065
     Dates: start: 20040130

REACTIONS (4)
  - ANAPHYLACTIC REACTION [None]
  - BRONCHOSPASM [None]
  - CIRCULATORY COLLAPSE [None]
  - ERYTHEMA [None]
